FAERS Safety Report 10332348 (Version 1)
Quarter: 2014Q3

REPORT INFORMATION
  Report Type: Spontaneous
  Country: US (occurrence: US)
  Receive Date: 20140722
  Receipt Date: 20140722
  Transmission Date: 20150326
  Serious: No
  Sender: FDA-Public Use
  Company Number: US-ASTRAZENECA-2014SE21525

PATIENT
  Age: 50 Year
  Sex: Female
  Weight: 47.6 kg

DRUGS (5)
  1. SEROQUEL [Suspect]
     Active Substance: QUETIAPINE FUMARATE
     Indication: LYME DISEASE
     Route: 048
     Dates: start: 201310
  2. DILAUDID [Concomitant]
     Active Substance: HYDROMORPHONE HYDROCHLORIDE
     Indication: BONE PAIN
     Route: 048
     Dates: start: 201403
  3. AMBIEN [Suspect]
     Active Substance: ZOLPIDEM TARTRATE
     Route: 065
  4. CLONAZEPAM. [Concomitant]
     Active Substance: CLONAZEPAM
     Indication: ANXIETY
     Route: 048
     Dates: start: 2013
  5. CSM COMPOUND [Concomitant]
     Indication: BLOOD CHOLESTEROL INCREASED
     Dosage: DAILY
     Route: 048

REACTIONS (2)
  - Insomnia [Unknown]
  - Off label use [Unknown]

NARRATIVE: CASE EVENT DATE: 201310
